FAERS Safety Report 23108496 (Version 1)
Quarter: 2023Q4

REPORT INFORMATION
  Report Type: Spontaneous
  Country: TZ (occurrence: TZ)
  Receive Date: 20231026
  Receipt Date: 20231026
  Transmission Date: 20240110
  Serious: Yes (Hospitalization, Other)
  Sender: FDA-Public Use
  Company Number: TZ-Accord-386799

PATIENT
  Age: 60 Year
  Sex: Male

DRUGS (5)
  1. CLOPIDOGREL [Suspect]
     Active Substance: CLOPIDOGREL BISULFATE
     Indication: Acute myocardial infarction
  2. ATORVASTATIN [Suspect]
     Active Substance: ATORVASTATIN
     Indication: Acute myocardial infarction
  3. METOPROLOL [Suspect]
     Active Substance: METOPROLOL
     Indication: Acute myocardial infarction
  4. TELMISARTAN [Suspect]
     Active Substance: TELMISARTAN
     Indication: Acute myocardial infarction
  5. ASPIRIN [Suspect]
     Active Substance: ASPIRIN
     Indication: Acute myocardial infarction

REACTIONS (3)
  - Chest pain [Recovering/Resolving]
  - Coronary artery occlusion [Recovering/Resolving]
  - Drug resistance [Recovering/Resolving]
